FAERS Safety Report 12644178 (Version 2)
Quarter: 2016Q3

REPORT INFORMATION
  Report Type: Spontaneous
  Country: US (occurrence: US)
  Receive Date: 20160811
  Receipt Date: 20160927
  Transmission Date: 20161109
  Serious: No
  Sender: FDA-Public Use
  Company Number: US-ASTRAZENECA-2016SE82185

PATIENT
  Age: 17 Year
  Sex: Male
  Weight: 79.4 kg

DRUGS (4)
  1. ALBUTEROL RESCUE INHALER [Concomitant]
     Indication: ASTHMA
     Dosage: AS NEEDED
     Route: 055
  2. SYMBICORT [Suspect]
     Active Substance: BUDESONIDE\FORMOTEROL FUMARATE DIHYDRATE
     Indication: ASTHMA
     Dosage: 160/4.5MCG 2 PUFFS IN THE MORNING AND 1 PUFF IN THE EVENING
     Route: 055
     Dates: start: 2012
  3. ALBUTEROL RESCUE INHALER [Concomitant]
     Indication: INHALATION THERAPY
     Dosage: AS NEEDED
     Route: 055
  4. SYMBICORT [Suspect]
     Active Substance: BUDESONIDE\FORMOTEROL FUMARATE DIHYDRATE
     Indication: ASTHMA
     Dosage: 160/4.5MCG 2 PUFFS IN THE MORNING AND 1 PUFF IN THE EVENING
     Route: 055
     Dates: start: 2014

REACTIONS (5)
  - Device defective [Unknown]
  - Circumstance or information capable of leading to medication error [Recovered/Resolved]
  - Pulmonary function test decreased [Unknown]
  - Off label use [Not Recovered/Not Resolved]
  - Device malfunction [Unknown]

NARRATIVE: CASE EVENT DATE: 2012
